FAERS Safety Report 4463814-8 (Version None)
Quarter: 2004Q3

REPORT INFORMATION
  Report Type: 
  Country: None (occurrence: None)
  Receive Date: 20040929
  Receipt Date: 20040923
  Transmission Date: 20050211
  Serious: Yes (Death)
  Sender: FDA-Public Use
  Company Number: 2004UW19849

PATIENT
  Age: 38 Year
  Sex: Female

DRUGS (9)
  1. SEROQUEL [Suspect]
  2. CLOZARIL [Suspect]
  3. ORAP [Suspect]
  4. CARBAMAZEPINE [Concomitant]
  5. CLONAZEPAM [Concomitant]
  6. FLURAZEPAM HCL [Concomitant]
  7. KEMADRIN [Concomitant]
  8. NOVA-GABAPENTIN [Concomitant]
  9. TOPAMAX [Concomitant]

REACTIONS (12)
  - ARRHYTHMIA [None]
  - ASTHENIA [None]
  - ATHEROSCLEROSIS [None]
  - CARDIAC ARREST [None]
  - HEPATIC STEATOSIS [None]
  - MYOCARDIAL ISCHAEMIA [None]
  - OBESITY [None]
  - PULMONARY CONGESTION [None]
  - PULMONARY OEDEMA [None]
  - PULMONARY THROMBOSIS [None]
  - RESPIRATORY ARREST [None]
  - SOMNOLENCE [None]
